FAERS Safety Report 9277588 (Version 2)
Quarter: 2013Q4

REPORT INFORMATION
  Report Type: Report from Study
  Country: CA (occurrence: CA)
  Receive Date: 20130508
  Receipt Date: 20131120
  Transmission Date: 20140711
  Serious: Yes (Other)
  Sender: FDA-Public Use
  Company Number: CA-JNJFOC-20130418041

PATIENT
  Age: 42 Year
  Sex: Female
  Weight: 57 kg

DRUGS (2)
  1. REMICADE [Suspect]
     Indication: CROHN^S DISEASE
     Dosage: 14 INFUSIONS TILL DATE
     Route: 042
  2. SPIRONOLACTONE [Concomitant]
     Indication: HYPERTENSION
     Route: 065

REACTIONS (1)
  - Cervix carcinoma [Unknown]
